FAERS Safety Report 9868762 (Version 1)
Quarter: 2014Q1

REPORT INFORMATION
  Report Type: Spontaneous
  Country: US (occurrence: US)
  Receive Date: 20140204
  Receipt Date: 20140204
  Transmission Date: 20141002
  Serious: Yes (Other)
  Sender: FDA-Public Use
  Company Number: US-LUNDBECK-DKLU1097053

PATIENT
  Sex: Male

DRUGS (3)
  1. SABRIL (FOR ORAL SOLUTION) [Suspect]
     Indication: PARTIAL SEIZURES
     Route: 048
  2. SABRIL (FOR ORAL SOLUTION) [Suspect]
     Indication: BRAIN OEDEMA
  3. SABRIL (FOR ORAL SOLUTION) [Suspect]
     Indication: ILL-DEFINED DISORDER

REACTIONS (1)
  - Eye disorder [Unknown]
